FAERS Safety Report 6078519-X (Version None)
Quarter: 2009Q1

REPORT INFORMATION
  Report Type: 
  Country: None (occurrence: None)
  Receive Date: 20090211
  Receipt Date: 20090211
  Transmission Date: 20090719
  Serious: No
  Sender: FDA-Public Use
  Company Number: None

PATIENT
  Age: 45 Year
  Sex: Female
  Weight: 113.3993 kg

DRUGS (2)
  1. VANCOMYCIN HCL [Suspect]
     Indication: STAPHYLOCOCCAL INFECTION
     Dosage: 1200 TO 1800 MG 2 TIMES PER DAY INTRA-ARTERIAL
     Route: 013
     Dates: start: 20060518, end: 20060714
  2. VANCOMYCIN HCL [Suspect]
     Indication: STAPHYLOCOCCAL INFECTION
     Dosage: 1200 TO 1800 MG 2 TIMES PER DAY INTRA-ARTERIAL
     Route: 013
     Dates: start: 20060814, end: 20061213

REACTIONS (1)
  - VESTIBULAR DISORDER [None]
